FAERS Safety Report 11159649 (Version 2)
Quarter: 2015Q2

REPORT INFORMATION
  Report Type: Spontaneous
  Country: BR (occurrence: BR)
  Receive Date: 20150603
  Receipt Date: 20150630
  Transmission Date: 20150821
  Serious: Yes (Death, Hospitalization)
  Sender: FDA-Public Use
  Company Number: BR-PFIZER INC-2015183036

PATIENT
  Age: 72 Year
  Sex: Male
  Weight: 49 kg

DRUGS (2)
  1. XALATAN [Suspect]
     Active Substance: LATANOPROST
     Indication: GLAUCOMA
     Dosage: UNK
     Route: 047
     Dates: start: 200805
  2. XALATAN [Suspect]
     Active Substance: LATANOPROST
     Dosage: USED IT EVERYDAY, MORE THAN ONCE A DAY, IN BOTH EYES
     Route: 047
     Dates: start: 2009

REACTIONS (2)
  - Pulmonary mass [Fatal]
  - Incorrect dose administered [Unknown]

NARRATIVE: CASE EVENT DATE: 2009
